FAERS Safety Report 24225673 (Version 1)
Quarter: 2024Q3

REPORT INFORMATION
  Report Type: Report from Study
  Country: US (occurrence: US)
  Receive Date: 20240820
  Receipt Date: 20240820
  Transmission Date: 20241017
  Serious: Yes (Other)
  Sender: UCB
  Company Number: US-UCBSA-2024041855

PATIENT
  Age: 53 Year
  Sex: Male

DRUGS (1)
  1. MIDAZOLAM [Suspect]
     Active Substance: MIDAZOLAM
     Indication: Seizure cluster
     Dosage: 5MG USING 1 SPRAY IN 1 NOSTRIL PRN, MAY REPEAT IN OTHER NOSTRIL IN 10 MINUTES IF PATIENT HAS NOT RES
     Route: 045

REACTIONS (2)
  - Seizure [Unknown]
  - Fall [Unknown]

NARRATIVE: CASE EVENT DATE: 20240803
